FAERS Safety Report 23108102 (Version 1)
Quarter: 2023Q4

REPORT INFORMATION
  Report Type: Spontaneous
  Country: US (occurrence: US)
  Receive Date: 20231026
  Receipt Date: 20231026
  Transmission Date: 20240109
  Serious: Yes (Other)
  Sender: FDA-Public Use
  Company Number: US-TAKEDA-2023TUS102164

PATIENT
  Sex: Female

DRUGS (2)
  1. VYVANSE [Suspect]
     Active Substance: LISDEXAMFETAMINE DIMESYLATE
     Indication: Attention deficit hyperactivity disorder
     Dosage: UNK UNK, QD
     Route: 065
  2. LEXAPRO [Concomitant]
     Active Substance: ESCITALOPRAM OXALATE
     Dosage: UNK
     Route: 065

REACTIONS (5)
  - Suicidal behaviour [Unknown]
  - Abnormal behaviour [Unknown]
  - Hyperhidrosis [Unknown]
  - Vomiting [Unknown]
  - Product availability issue [Unknown]
